FAERS Safety Report 19097843 (Version 1)
Quarter: 2021Q2

REPORT INFORMATION
  Report Type: Spontaneous
  Country: GB (occurrence: GB)
  Receive Date: 20210406
  Receipt Date: 20210406
  Transmission Date: 20210717
  Serious: Yes (Other)
  Sender: FDA-Public Use
  Company Number: GB-TEVA-2021-GB-1896170

PATIENT
  Age: 65 Year
  Sex: Male
  Weight: 135.16 kg

DRUGS (11)
  1. BISOPROLOL FUMARATE. [Concomitant]
     Active Substance: BISOPROLOL FUMARATE
  2. AMOXICILLIN. [Concomitant]
     Active Substance: AMOXICILLIN
  3. TAMSULOSIN HYDROCHLORIDE. [Concomitant]
     Active Substance: TAMSULOSIN HYDROCHLORIDE
  4. COD LIVER OIL [Concomitant]
     Active Substance: COD LIVER OIL
  5. LOSARTAN POTASSIUM. [Concomitant]
     Active Substance: LOSARTAN POTASSIUM
  6. ROSUVASTATIN. [Concomitant]
     Active Substance: ROSUVASTATIN
  7. LEVOFLOXACIN. [Suspect]
     Active Substance: LEVOFLOXACIN
     Indication: ENCEPHALITIS
     Dosage: 500 MILLIGRAM DAILY;
     Route: 048
     Dates: start: 20210314
  8. VALGANCICLOVIR. [Suspect]
     Active Substance: VALGANCICLOVIR
     Indication: ENCEPHALITIS
     Dosage: 900 MILLIGRAM DAILY;
     Route: 048
     Dates: start: 20210314
  9. OMEPRAZOLE. [Concomitant]
     Active Substance: OMEPRAZOLE
  10. ASPIRIN. [Concomitant]
     Active Substance: ASPIRIN
  11. INDAPAMIDE. [Concomitant]
     Active Substance: INDAPAMIDE

REACTIONS (2)
  - Tendon discomfort [Not Recovered/Not Resolved]
  - Muscle discomfort [Not Recovered/Not Resolved]

NARRATIVE: CASE EVENT DATE: 20210314
